FAERS Safety Report 5575235-5 (Version None)
Quarter: 2007Q4

REPORT INFORMATION
  Report Type: 
  Country: None (occurrence: None)
  Receive Date: 20071227
  Receipt Date: 20071218
  Transmission Date: 20080405
  Serious: Yes (Other)
  Sender: FDA-Public Use
  Company Number: US-PFIZER INC-2007107280

PATIENT
  Sex: Male

DRUGS (5)
  1. LIPITOR [Suspect]
     Indication: BLOOD CHOLESTEROL INCREASED
     Route: 048
  2. PROTONIX [Concomitant]
  3. DEPAKOTE [Concomitant]
  4. MAXALT [Concomitant]
  5. VERAPAMIL [Concomitant]

REACTIONS (3)
  - BONE PAIN [None]
  - CARDIAC OPERATION [None]
  - NEUROPATHY PERIPHERAL [None]
